FAERS Safety Report 7341238-3 (Version None)
Quarter: 2011Q1

REPORT INFORMATION
  Report Type: 
  Country: None (occurrence: None)
  Receive Date: 20110309
  Receipt Date: 20110228
  Transmission Date: 20110831
  Serious: Yes (Other)
  Sender: FDA-Public Use
  Company Number: JP-CELGENEUS-087-21880-10120471

PATIENT
  Sex: Male
  Weight: 62.5 kg

DRUGS (10)
  1. REVLIMID [Suspect]
     Dosage: 10 MILLIGRAM
     Route: 048
     Dates: start: 20100929, end: 20101019
  2. REVLIMID [Suspect]
     Dosage: 15 MILLIGRAM
     Route: 048
     Dates: start: 20110117, end: 20110206
  3. REVLIMID [Suspect]
     Indication: MULTIPLE MYELOMA
     Dosage: 15 MILLIGRAM
     Route: 048
     Dates: start: 20100901, end: 20100907
  4. REVLIMID [Suspect]
     Dosage: 15 MILLIGRAM
     Route: 048
     Dates: start: 20100911, end: 20100921
  5. REVLIMID [Suspect]
     Dosage: 20 MILLIGRAM
     Route: 048
     Dates: start: 20101129, end: 20101210
  6. DEXAMETHASONE [Concomitant]
     Indication: MULTIPLE MYELOMA
     Dosage: 33 MILLIGRAM
     Route: 041
     Dates: start: 20100901, end: 20100904
  7. REVLIMID [Suspect]
     Dosage: 15 MILLIGRAM
     Route: 048
     Dates: start: 20100927, end: 20101116
  8. REVLIMID [Suspect]
     Dosage: 15 MILLIGRAM
     Route: 048
     Dates: start: 20101221, end: 20110102
  9. ZOMETA [Concomitant]
     Indication: MULTIPLE MYELOMA
     Dosage: 4 MILLIGRAM
     Route: 041
     Dates: start: 20101108, end: 20101108
  10. DEXAMETHASONE [Concomitant]
     Dosage: 33 MILLIGRAM
     Route: 041
     Dates: start: 20100909, end: 20100912

REACTIONS (11)
  - THROMBOCYTOPENIA [None]
  - HAEMOGLOBIN DECREASED [None]
  - PLATELET COUNT DECREASED [None]
  - GLUCOSE TOLERANCE IMPAIRED [None]
  - RENAL DISORDER [None]
  - HYPERBILIRUBINAEMIA [None]
  - C-REACTIVE PROTEIN INCREASED [None]
  - TREMOR [None]
  - HYPOCALCAEMIA [None]
  - BLOOD CREATININE INCREASED [None]
  - FEBRILE NEUTROPENIA [None]
